FAERS Safety Report 14874602 (Version 1)
Quarter: 2018Q2

REPORT INFORMATION
  Report Type: Spontaneous
  Country: US (occurrence: US)
  Receive Date: 20180510
  Receipt Date: 20180510
  Transmission Date: 20180711
  Serious: Yes (Death)
  Sender: FDA-Public Use
  Company Number: US-TEVA-2018-US-889771

PATIENT
  Age: 35 Year
  Sex: Female

DRUGS (3)
  1. GRANIX [Suspect]
     Active Substance: TBO-FILGRASTIM
     Dates: start: 20170415
  2. ALOXI [Concomitant]
     Active Substance: PALONOSETRON HYDROCHLORIDE
     Route: 065
  3. ABRAXANE [Concomitant]
     Active Substance: PACLITAXEL
     Route: 065

REACTIONS (1)
  - Death [Fatal]

NARRATIVE: CASE EVENT DATE: 20170415
